FAERS Safety Report 16030341 (Version 1)
Quarter: 2019Q1

REPORT INFORMATION
  Report Type: Spontaneous
  Country: IT (occurrence: IT)
  Receive Date: 20190304
  Receipt Date: 20190304
  Transmission Date: 20190418
  Serious: Yes (Other)
  Sender: FDA-Public Use
  Company Number: IT-PFIZER INC-2019089310

PATIENT
  Age: 76 Year
  Sex: Male
  Weight: 75 kg

DRUGS (2)
  1. DOCETAXEL. [Concomitant]
     Active Substance: DOCETAXEL
     Indication: ADENOCARCINOMA GASTRIC
     Dosage: 110 MG, UNK
     Route: 042
     Dates: start: 20190104, end: 20190104
  2. NIVESTIM [Suspect]
     Active Substance: FILGRASTIM
     Indication: NEUTROPENIA
     Dosage: 300 UG, 1X/DAY
     Route: 058
     Dates: start: 20190108, end: 20190110

REACTIONS (1)
  - Dyspnoea at rest [Unknown]

NARRATIVE: CASE EVENT DATE: 20190108
